FAERS Safety Report 12832802 (Version 4)
Quarter: 2017Q1

REPORT INFORMATION
  Report Type: Spontaneous
  Country: US (occurrence: US)
  Receive Date: 20161010
  Receipt Date: 20170109
  Transmission Date: 20170428
  Serious: Yes (Disabling, Other)
  Sender: FDA-Public Use
  Company Number: US-GLAXOSMITHKLINE-US2016GSK146874

PATIENT
  Sex: Female
  Weight: 70.3 kg

DRUGS (8)
  1. SUMATRIPTAN (SUMATRIPTAN SUCCINATE) [Suspect]
     Active Substance: SUMATRIPTAN SUCCINATE
     Indication: MIGRAINE
     Dosage: UNK, U
     Route: 042
  2. LYRICA [Concomitant]
     Active Substance: PREGABALIN
  3. METFORMIN [Concomitant]
     Active Substance: METFORMIN HYDROCHLORIDE
  4. VITAMIN B12 [Concomitant]
     Active Substance: CYANOCOBALAMIN
  5. TRAMADOL. [Concomitant]
     Active Substance: TRAMADOL
  6. VIIBRYD [Concomitant]
     Active Substance: VILAZODONE HYDROCHLORIDE
  7. HYDROCODONE [Concomitant]
     Active Substance: HYDROCODONE
  8. BENADRYL-DIPHENHYDRAMINE [Concomitant]

REACTIONS (3)
  - Product quality issue [Unknown]
  - Drug effect incomplete [Not Recovered/Not Resolved]
  - Disability [Unknown]
